FAERS Safety Report 6944303-5 (Version None)
Quarter: 2010Q3

REPORT INFORMATION
  Report Type: 
  Country: None (occurrence: None)
  Receive Date: 20100827
  Receipt Date: 20100820
  Transmission Date: 20110219
  Serious: No
  Sender: FDA-Public Use
  Company Number: US-BIOGENIDEC-2010BI029381

PATIENT
  Sex: Male

DRUGS (3)
  1. TYSABRI [Suspect]
     Indication: MULTIPLE SCLEROSIS
     Route: 042
     Dates: start: 20050111, end: 20050101
  2. TYSABRI [Suspect]
     Route: 042
     Dates: start: 20060912, end: 20061107
  3. TYSABRI [Suspect]
     Route: 042
     Dates: start: 20070419

REACTIONS (2)
  - TEMPERATURE INTOLERANCE [None]
  - VISUAL ACUITY REDUCED [None]
